FAERS Safety Report 20617261 (Version 1)
Quarter: 2022Q1

REPORT INFORMATION
  Report Type: Spontaneous
  Country: US (occurrence: None)
  Receive Date: 20220319
  Receipt Date: 20220319
  Transmission Date: 20220423
  Serious: Yes (Death)
  Sender: FDA-Public Use
  Company Number: None

PATIENT
  Age: 26 Year
  Sex: Male
  Weight: 66.2 kg

DRUGS (4)
  1. DROPERIDOL [Suspect]
     Active Substance: DROPERIDOL
     Indication: Nausea
     Dosage: FREQUENCY : ONCE;?
     Route: 040
     Dates: start: 20211018, end: 20211018
  2. POTASSIUM CHLORIDE [Concomitant]
     Active Substance: POTASSIUM CHLORIDE
     Dates: start: 20211018, end: 20211018
  3. KEPPRA XR [Concomitant]
  4. LATUDA [Concomitant]
     Active Substance: LURASIDONE HYDROCHLORIDE

REACTIONS (4)
  - Abdominal pain [None]
  - Nausea [None]
  - Cardiac arrest [None]
  - Cannabinoid hyperemesis syndrome [None]

NARRATIVE: CASE EVENT DATE: 20211018
